FAERS Safety Report 11512523 (Version 1)
Quarter: 2015Q3

REPORT INFORMATION
  Report Type: Spontaneous
  Country: RU (occurrence: RU)
  Receive Date: 20150916
  Receipt Date: 20150916
  Transmission Date: 20151125
  Serious: Yes (Other)
  Sender: FDA-Public Use
  Company Number: RU-ROCHE-1632754

PATIENT
  Age: 60 Year
  Sex: Male

DRUGS (3)
  1. ZELBORAF [Suspect]
     Active Substance: VEMURAFENIB
     Dosage: 1200 MG PER DAY
     Route: 048
     Dates: start: 2015
  2. ZELBORAF [Suspect]
     Active Substance: VEMURAFENIB
     Indication: MALIGNANT MELANOMA
     Route: 048
     Dates: start: 201501, end: 201501
  3. ZELBORAF [Suspect]
     Active Substance: VEMURAFENIB
     Route: 048
     Dates: start: 2015, end: 2015

REACTIONS (11)
  - Pruritus [Recovering/Resolving]
  - Mouth ulceration [Recovering/Resolving]
  - Decreased appetite [Recovering/Resolving]
  - Conjunctivitis [Recovering/Resolving]
  - Lacrimation increased [Recovering/Resolving]
  - Erythema [Recovering/Resolving]
  - Eyelid rash [Recovering/Resolving]
  - Skin burning sensation [Recovering/Resolving]
  - Rash papular [Recovering/Resolving]
  - Asthenia [Recovering/Resolving]
  - Diarrhoea [Recovering/Resolving]
